FAERS Safety Report 5955534-5 (Version None)
Quarter: 2008Q4

REPORT INFORMATION
  Report Type: 
  Country: None (occurrence: None)
  Receive Date: 20081117
  Receipt Date: 20081110
  Transmission Date: 20090506
  Serious: Yes (Hospitalization)
  Sender: FDA-Public Use
  Company Number: US-GILEAD-2008-0018916

PATIENT
  Sex: Female

DRUGS (11)
  1. LETAIRIS [Suspect]
     Indication: PULMONARY ARTERIAL HYPERTENSION
     Route: 048
     Dates: start: 20081017
  2. REVATIO [Concomitant]
  3. CARVEDILOL [Concomitant]
  4. TORSEMIDE [Concomitant]
  5. ASPIRIN [Concomitant]
  6. LISINOPRIL [Concomitant]
  7. IPRATROPIUM BROMIDE [Concomitant]
  8. GLUCOPHAGE [Concomitant]
  9. MAGNESIUM SULFATE [Concomitant]
  10. VITAMIN B [Concomitant]
  11. VITAMIN D [Concomitant]

REACTIONS (3)
  - APNOEA [None]
  - DYSPNOEA [None]
  - OXYGEN SATURATION DECREASED [None]
